FAERS Safety Report 6132008-2 (Version None)
Quarter: 2009Q1

REPORT INFORMATION
  Report Type: 
  Country: None (occurrence: None)
  Receive Date: 20090325
  Receipt Date: 20090313
  Transmission Date: 20090719
  Serious: Yes (Hospitalization)
  Sender: FDA-Public Use
  Company Number: JP-SANOFI-SYNTHELABO-A01200902982

PATIENT
  Sex: Male
  Weight: 55 kg

DRUGS (5)
  1. AZD2171 [Concomitant]
     Indication: COLON CANCER
     Dosage: UNK
     Route: 048
     Dates: start: 20080422, end: 20081224
  2. FLUOROURACIL [Suspect]
     Dosage: UNK
     Route: 040
     Dates: start: 20081224, end: 20081224
  3. FLUOROURACIL [Suspect]
     Dosage: UNK
     Route: 041
     Dates: start: 20081224, end: 20081225
  4. CALCIUM LEVOFOLINATE [Suspect]
     Dosage: UNK
     Route: 041
     Dates: start: 20081224, end: 20081224
  5. OXALIPLATIN [Suspect]
     Indication: COLON CANCER
     Dosage: UNK
     Route: 041
     Dates: start: 20081224, end: 20081224

REACTIONS (1)
  - CHOLECYSTITIS ACUTE [None]
